FAERS Safety Report 21924446 (Version 1)
Quarter: 2023Q1

REPORT INFORMATION
  Report Type: Spontaneous
  Country: US (occurrence: US)
  Receive Date: 20230130
  Receipt Date: 20230130
  Transmission Date: 20230418
  Serious: No
  Sender: FDA-Public Use
  Company Number: US-BRISTOL-MYERS SQUIBB COMPANY-2023-013120

PATIENT
  Age: 78 Year
  Sex: Female

DRUGS (2)
  1. OPDIVO [Suspect]
     Active Substance: NIVOLUMAB
     Indication: Metastatic malignant melanoma
     Dosage: DOSE : OPDIVO 1MG/KG  /YERVOY 3MG/KG;     FREQ : ONLY 1 DOSE GIVEN?DURATION OF DRUG ADMINISTRATION1
     Route: 042
     Dates: start: 202212, end: 202212
  2. YERVOY [Suspect]
     Active Substance: IPILIMUMAB
     Indication: Metastatic malignant melanoma
     Dosage: DOSE : OPDIVO 1MG/KG  /YERVOY 3MG/KG;     FREQ : ONLY 1 DOSE GIVEN?DURATION OF DRUG ADMINISTRATION1
     Route: 042

REACTIONS (2)
  - Rash [Unknown]
  - Mouth ulceration [Unknown]

NARRATIVE: CASE EVENT DATE: 20221201
